FAERS Safety Report 22103788 (Version 3)
Quarter: 2023Q1

REPORT INFORMATION
  Report Type: Spontaneous
  Country: None (occurrence: US)
  Receive Date: 20230316
  Receipt Date: 20230317
  Transmission Date: 20230417
  Serious: Yes (Other)
  Sender: FDA-Public Use
  Company Number: US-Ascend Therapeutics US, LLC-2139159

PATIENT
  Age: 36 Year
  Sex: Female

DRUGS (2)
  1. ANDROGEL [Suspect]
     Active Substance: TESTOSTERONE
     Indication: Product used for unknown indication
     Route: 061
  2. ANDROGEL [Suspect]
     Active Substance: TESTOSTERONE
     Route: 061

REACTIONS (8)
  - Idiopathic intracranial hypertension [Recovering/Resolving]
  - Blindness transient [Unknown]
  - Visual impairment [Recovered/Resolved]
  - Colour blindness [Unknown]
  - Migraine [Unknown]
  - Off label use [None]
  - Vision blurred [Recovered/Resolved]
  - Diplopia [Unknown]
